FAERS Safety Report 12962477 (Version 1)
Quarter: 2016Q4

REPORT INFORMATION
  Report Type: Spontaneous
  Country: US (occurrence: US)
  Receive Date: 20161121
  Receipt Date: 20161121
  Transmission Date: 20170207
  Serious: No
  Sender: FDA-Public Use
  Company Number: US-ALLERGAN-1602462US

PATIENT
  Sex: Male
  Weight: 83.91 kg

DRUGS (3)
  1. TOVIAZ [Concomitant]
     Active Substance: FESOTERODINE FUMARATE
     Indication: HYPERTONIC BLADDER
     Dosage: 8 MG, QD
     Route: 048
     Dates: start: 201504
  2. XALATAN [Concomitant]
     Active Substance: LATANOPROST
     Indication: GLAUCOMA
  3. COMBIGAN [Suspect]
     Active Substance: BRIMONIDINE TARTRATE\TIMOLOL MALEATE
     Indication: GLAUCOMA
     Dosage: UNK, BID
     Route: 047

REACTIONS (3)
  - Cataract operation [Unknown]
  - Intraocular pressure increased [Recovered/Resolved]
  - Eye laser surgery [Unknown]

NARRATIVE: CASE EVENT DATE: 2015
